FAERS Safety Report 17430759 (Version 1)
Quarter: 2020Q1

REPORT INFORMATION
  Report Type: Spontaneous
  Country: US (occurrence: US)
  Receive Date: 20200217
  Receipt Date: 20200217
  Transmission Date: 20200409
  Serious: Yes (Hospitalization)
  Sender: FDA-Public Use
  Company Number: None

PATIENT
  Sex: Female

DRUGS (2)
  1. CAPECITABINE. [Suspect]
     Active Substance: CAPECITABINE
     Indication: NEOPLASM MALIGNANT
     Route: 048
  2. NERLYNX [Concomitant]
     Active Substance: NERATINIB

REACTIONS (2)
  - Blood potassium abnormal [None]
  - Dehydration [None]

NARRATIVE: CASE EVENT DATE: 20200207
